FAERS Safety Report 16157947 (Version 1)
Quarter: 2019Q2

REPORT INFORMATION
  Report Type: Spontaneous
  Country: US (occurrence: US)
  Receive Date: 20190404
  Receipt Date: 20190404
  Transmission Date: 20190711
  Serious: No
  Sender: FDA-Public Use
  Company Number: US-BAYER-2019-067088

PATIENT
  Age: 72 Year
  Sex: Female
  Weight: 75 kg

DRUGS (4)
  1. MIRALAX [Suspect]
     Active Substance: POLYETHYLENE GLYCOL 3350
     Indication: DIARRHOEA
  2. BENEFIBER (GUAR GUM) [Concomitant]
     Active Substance: GUAR GUM
  3. MUCINEX [Concomitant]
     Active Substance: GUAIFENESIN
  4. MIRALAX [Suspect]
     Active Substance: POLYETHYLENE GLYCOL 3350
     Indication: CONSTIPATION
     Dosage: 17G IN 10OZ OF COFFEE
     Route: 048
     Dates: start: 20190403

REACTIONS (1)
  - Wrong technique in product usage process [Unknown]
